FAERS Safety Report 10378639 (Version 1)
Quarter: 2014Q3

REPORT INFORMATION
  Report Type: Spontaneous
  Country: US (occurrence: None)
  Receive Date: 20140804
  Receipt Date: 20140804
  Transmission Date: 20150326
  Serious: Yes (Death, Hospitalization)
  Sender: FDA-Public Use
  Company Number: UNT-2014-004216

PATIENT
  Age: 71 Year
  Sex: Female
  Weight: 81.7 kg

DRUGS (1)
  1. REMODULIN [Suspect]
     Active Substance: TREPROSTINIL
     Indication: COR PULMONALE CHRONIC
     Dosage: 0.013 NG/KG , CONTINUING , IV DRIP
     Route: 041
     Dates: start: 20140530

REACTIONS (3)
  - Respiratory failure [None]
  - Disease progression [None]
  - Pulmonary arterial hypertension [None]

NARRATIVE: CASE EVENT DATE: 20140707
